FAERS Safety Report 18937579 (Version 4)
Quarter: 2024Q1

REPORT INFORMATION
  Report Type: Report from Study
  Country: CA (occurrence: None)
  Receive Date: 20210225
  Receipt Date: 20240325
  Transmission Date: 20240409
  Serious: Yes (Death, Hospitalization, Other)
  Sender: FDA-Public Use
  Company Number: CA-PFIZER INC-2021177306

PATIENT
  Age: 35 Year
  Sex: Male

DRUGS (43)
  1. METHOTREXATE [Suspect]
     Active Substance: METHOTREXATE
     Indication: Product used for unknown indication
  2. METHOTREXATE [Suspect]
     Active Substance: METHOTREXATE
  3. COSENTYX [Suspect]
     Active Substance: SECUKINUMAB
     Indication: Ankylosing spondylitis
  4. COSENTYX [Suspect]
     Active Substance: SECUKINUMAB
     Indication: Ankylosing spondylitis
  5. COSENTYX [Suspect]
     Active Substance: SECUKINUMAB
  6. COSENTYX [Suspect]
     Active Substance: SECUKINUMAB
  7. COSENTYX [Suspect]
     Active Substance: SECUKINUMAB
  8. COSENTYX [Suspect]
     Active Substance: SECUKINUMAB
  9. COSENTYX [Suspect]
     Active Substance: SECUKINUMAB
  10. COSENTYX [Suspect]
     Active Substance: SECUKINUMAB
  11. COSENTYX [Suspect]
     Active Substance: SECUKINUMAB
  12. COSENTYX [Suspect]
     Active Substance: SECUKINUMAB
  13. COSENTYX [Suspect]
     Active Substance: SECUKINUMAB
  14. COSENTYX [Suspect]
     Active Substance: SECUKINUMAB
  15. INDOMETHACIN [Suspect]
     Active Substance: INDOMETHACIN
     Indication: Product used for unknown indication
  16. INDOMETHACIN [Suspect]
     Active Substance: INDOMETHACIN
  17. LEFLUNOMIDE [Suspect]
     Active Substance: LEFLUNOMIDE
     Indication: Product used for unknown indication
  18. LEFLUNOMIDE [Suspect]
     Active Substance: LEFLUNOMIDE
  19. CELEBREX [Concomitant]
     Active Substance: CELECOXIB
  20. CELEBREX [Concomitant]
     Active Substance: CELECOXIB
     Dosage: UNK
  21. ENBREL [Concomitant]
     Active Substance: ETANERCEPT
  22. ENBREL [Concomitant]
     Active Substance: ETANERCEPT
     Dosage: UNK
  23. HUMIRA [Concomitant]
     Active Substance: ADALIMUMAB
  24. HUMIRA [Concomitant]
     Active Substance: ADALIMUMAB
  25. HUMIRA [Concomitant]
     Active Substance: ADALIMUMAB
  26. IBUPROFEN [Concomitant]
     Active Substance: IBUPROFEN
  27. IBUPROFEN [Concomitant]
     Active Substance: IBUPROFEN
     Dosage: UNK
  28. NAPROXEN [Concomitant]
     Active Substance: NAPROXEN
  29. NAPROXEN [Concomitant]
     Active Substance: NAPROXEN
     Dosage: UNK
  30. PREDNISONE [Concomitant]
     Active Substance: PREDNISONE
  31. PREDNISONE [Concomitant]
     Active Substance: PREDNISONE
  32. QUETIAPINE FUMARATE [Concomitant]
     Active Substance: QUETIAPINE FUMARATE
  33. QUETIAPINE FUMARATE [Concomitant]
     Active Substance: QUETIAPINE FUMARATE
     Dosage: UNK
  34. SULFASALAZINE [Concomitant]
     Active Substance: SULFASALAZINE
  35. SULFASALAZINE [Concomitant]
     Active Substance: SULFASALAZINE
     Dosage: 12.5 MG, 1X/DAY
  36. VENLAFAXINE [Concomitant]
     Active Substance: VENLAFAXINE HYDROCHLORIDE
  37. LYRICA [Concomitant]
     Active Substance: PREGABALIN
     Dosage: 1 DF, 2X/DAY
  38. LYRICA [Concomitant]
     Active Substance: PREGABALIN
     Dosage: 2 DF, 1X/DAY
  39. DULOXETINE HYDROCHLORIDE [Concomitant]
     Active Substance: DULOXETINE HYDROCHLORIDE
  40. DULOXETINE HYDROCHLORIDE [Concomitant]
     Active Substance: DULOXETINE HYDROCHLORIDE
     Dosage: UNK
  41. DULOXETINE HYDROCHLORIDE [Concomitant]
     Active Substance: DULOXETINE HYDROCHLORIDE
     Dosage: UNK
  42. VENLAFAXINE HYDROCHLORIDE [Concomitant]
     Active Substance: VENLAFAXINE HYDROCHLORIDE
  43. VENLAFAXINE HYDROCHLORIDE [Concomitant]
     Active Substance: VENLAFAXINE HYDROCHLORIDE

REACTIONS (11)
  - Death [Fatal]
  - Seizure [Unknown]
  - Pain [Unknown]
  - Arthralgia [Unknown]
  - Cough [Unknown]
  - Influenza [Unknown]
  - Nasopharyngitis [Unknown]
  - Ankylosing spondylitis [Unknown]
  - Colitis ulcerative [Unknown]
  - Fibromyalgia [Unknown]
  - Chronic idiopathic pain syndrome [Unknown]
